FAERS Safety Report 5268267-8 (Version None)
Quarter: 2007Q1

REPORT INFORMATION
  Report Type: 
  Country: None (occurrence: None)
  Receive Date: 20070313
  Receipt Date: 20070305
  Transmission Date: 20070707
  Serious: Yes (Hospitalization)
  Sender: FDA-Public Use
  Company Number: E2090-00184-SPO-JP

PATIENT
  Age: 60 Hour
  Sex: Male

DRUGS (13)
  1. EXCEGRAN (ZONISAMIDE) [Suspect]
     Indication: CONVULSION
     Dosage: 200 MG, 2 IN 1 D, ORAL
     Route: 048
     Dates: start: 20070105, end: 20070118
  2. EXCEGRAN (ZONISAMIDE) [Suspect]
     Indication: CONVULSION
     Dosage: 200 MG, 2 IN 1 D, ORAL
     Route: 048
     Dates: start: 20070101, end: 20070206
  3. WARFARIN SODIUM [Suspect]
     Indication: ATRIAL FIBRILLATION
     Dosage: 3.5 MG, 1 IN 1 D, ORAL
     Route: 048
     Dates: start: 20070104, end: 20070112
  4. WARFARIN SODIUM [Suspect]
     Indication: MITRAL VALVE STENOSIS
     Dosage: 3.5 MG, 1 IN 1 D, ORAL
     Route: 048
     Dates: start: 20070104, end: 20070112
  5. WARFARIN SODIUM [Suspect]
     Indication: ATRIAL FIBRILLATION
     Dosage: 3.5 MG, 1 IN 1 D, ORAL
     Route: 048
     Dates: start: 20070122, end: 20070206
  6. WARFARIN SODIUM [Suspect]
     Indication: MITRAL VALVE STENOSIS
     Dosage: 3.5 MG, 1 IN 1 D, ORAL
     Route: 048
     Dates: start: 20070122, end: 20070206
  7. WARFARIN SODIUM [Suspect]
     Indication: ATRIAL FIBRILLATION
     Dosage: 3.5 MG, 1 IN 1 D, ORAL
     Route: 048
     Dates: start: 19980101
  8. WARFARIN SODIUM [Suspect]
     Indication: MITRAL VALVE STENOSIS
     Dosage: 3.5 MG, 1 IN 1 D, ORAL
     Route: 048
     Dates: start: 19980101
  9. WARFARIN SODIUM [Suspect]
     Indication: ATRIAL FIBRILLATION
     Dosage: 3.5 MG, 1 IN 1 D, ORAL
     Route: 048
     Dates: start: 20070213
  10. WARFARIN SODIUM [Suspect]
     Indication: MITRAL VALVE STENOSIS
     Dosage: 3.5 MG, 1 IN 1 D, ORAL
     Route: 048
     Dates: start: 20070213
  11. DIGOXIN [Concomitant]
  12. BLOPRESS (CANDESARTAN CILEXETIL) [Concomitant]
  13. AMOBAN (ZOPICLONE) [Concomitant]

REACTIONS (11)
  - BLOOD PRESSURE DECREASED [None]
  - BRAIN TUMOUR OPERATION [None]
  - DRUG INTERACTION [None]
  - DUODENAL ULCER [None]
  - GASTROINTESTINAL HAEMORRHAGE [None]
  - HAEMATOCRIT DECREASED [None]
  - HAEMOGLOBIN DECREASED [None]
  - INTERNATIONAL NORMALISED RATIO INCREASED [None]
  - PALLOR [None]
  - PROTHROMBIN TIME PROLONGED [None]
  - RED BLOOD CELL COUNT DECREASED [None]
